FAERS Safety Report 12434155 (Version 3)
Quarter: 2016Q2

REPORT INFORMATION
  Report Type: Report from Study
  Country: US (occurrence: US)
  Receive Date: 20160603
  Receipt Date: 20160629
  Transmission Date: 20160815
  Serious: Yes (Hospitalization)
  Sender: FDA-Public Use
  Company Number: US-VERTEX PHARMACEUTICALS-2016-003539

PATIENT
  Age: 36 Year
  Sex: Female

DRUGS (1)
  1. ORKAMBI [Suspect]
     Active Substance: IVACAFTOR\LUMACAFTOR
     Indication: CYSTIC FIBROSIS
     Route: 048

REACTIONS (7)
  - Dyspepsia [Unknown]
  - Abdominal pain upper [Unknown]
  - Depression [Recovered/Resolved]
  - Pulmonary function test decreased [Recovered/Resolved]
  - Weight decreased [Recovered/Resolved]
  - Hospitalisation [Recovered/Resolved]
  - Dyspnoea [Unknown]
